FAERS Safety Report 20907560 (Version 4)
Quarter: 2022Q4

REPORT INFORMATION
  Report Type: Spontaneous
  Country: US (occurrence: US)
  Receive Date: 20220602
  Receipt Date: 20221007
  Transmission Date: 20230113
  Serious: Yes (Other)
  Sender: FDA-Public Use
  Company Number: US-BRISTOL-MYERS SQUIBB COMPANY-2022-050759

PATIENT
  Age: 66 Year
  Sex: Male
  Weight: 75.3 kg

DRUGS (5)
  1. REVLIMID [Suspect]
     Active Substance: LENALIDOMIDE
     Indication: Plasma cell myeloma
     Dosage: FREQ-D1-21Q 28 DAYS.
     Route: 048
     Dates: start: 20220522
  2. REVLIMID [Suspect]
     Active Substance: LENALIDOMIDE
     Dosage: FREQUENCY- DAILY 1-14 EVERY 21DAYS
     Route: 048
     Dates: start: 20220512
  3. REVLIMID [Suspect]
     Active Substance: LENALIDOMIDE
     Route: 048
     Dates: start: 20220511
  4. DEXAMETHASONE [Concomitant]
     Active Substance: DEXAMETHASONE
  5. VELCADE [Concomitant]
     Active Substance: BORTEZOMIB

REACTIONS (5)
  - Red blood cell abnormality [Unknown]
  - Drug ineffective [Unknown]
  - Full blood count decreased [Unknown]
  - White blood cell count decreased [Recovered/Resolved]
  - Off label use [Unknown]

NARRATIVE: CASE EVENT DATE: 20220528
